FAERS Safety Report 11344586 (Version 1)
Quarter: 2015Q3

REPORT INFORMATION
  Report Type: Spontaneous
  Country: US (occurrence: US)
  Receive Date: 20150806
  Receipt Date: 20150806
  Transmission Date: 20151125
  Serious: No
  Sender: FDA-Public Use
  Company Number: US-ENDO PHARMACEUTICALS INC.-2015-001777

PATIENT
  Sex: Male
  Weight: 85.81 kg

DRUGS (2)
  1. PREDNISONE TABLETS [Suspect]
     Active Substance: PREDNISONE
     Indication: BRONCHITIS CHRONIC
     Route: 065
  2. PREDNISONE TABLETS [Suspect]
     Active Substance: PREDNISONE
     Indication: RESPIRATORY FAILURE
     Dosage: TAPER
     Route: 065
     Dates: end: 20150525

REACTIONS (1)
  - Tremor [Recovered/Resolved]
